FAERS Safety Report 6736396-5 (Version None)
Quarter: 2010Q2

REPORT INFORMATION
  Report Type: 
  Country: None (occurrence: None)
  Receive Date: 20100521
  Receipt Date: 20100514
  Transmission Date: 20101027
  Serious: Yes (Life-Threatening, Hospitalization, Disabling)
  Sender: FDA-Public Use
  Company Number: GB-MERCK-1004GBR00097

PATIENT
  Age: 55 Year
  Sex: Female
  Weight: 84 kg

DRUGS (4)
  1. ZOCOR [Suspect]
     Indication: BLOOD CHOLESTEROL INCREASED
     Route: 048
     Dates: start: 20090801, end: 20100405
  2. ZOCOR [Suspect]
     Route: 048
     Dates: start: 20031001, end: 20090201
  3. BEZAFIBRATE [Suspect]
     Indication: BLOOD CHOLESTEROL INCREASED
     Route: 048
     Dates: start: 20090401, end: 20090501
  4. NIACIN [Suspect]
     Route: 065
     Dates: start: 20090501, end: 20090801

REACTIONS (6)
  - AUTOIMMUNE HEPATITIS [None]
  - JAUNDICE [None]
  - MUSCULAR WEAKNESS [None]
  - MYALGIA [None]
  - RENAL FAILURE ACUTE [None]
  - RHABDOMYOLYSIS [None]
